FAERS Safety Report 8276689-6 (Version None)
Quarter: 2012Q2

REPORT INFORMATION
  Report Type: 
  Country: None (occurrence: None)
  Receive Date: 20120412
  Receipt Date: 20120412
  Transmission Date: 20120825
  Serious: Yes (Life-Threatening, Disabling, Other)
  Sender: FDA-Public Use
  Company Number: None

PATIENT
  Age: 41 Year
  Sex: Female
  Weight: 81.193 kg

DRUGS (2)
  1. LOW-OGESTREL-28 [Suspect]
     Indication: CONTRACEPTION
     Route: 048
     Dates: start: 20100801, end: 20120404
  2. LO/OVRAL [Suspect]

REACTIONS (14)
  - ASTHENIA [None]
  - WEIGHT INCREASED [None]
  - HYPOAESTHESIA [None]
  - SUICIDAL IDEATION [None]
  - MALAISE [None]
  - DEPRESSION [None]
  - CHEST DISCOMFORT [None]
  - PRODUCT QUALITY ISSUE [None]
  - DIZZINESS [None]
  - CHEST PAIN [None]
  - FATIGUE [None]
  - LOSS OF CONSCIOUSNESS [None]
  - HEADACHE [None]
  - DYSPNOEA [None]
